FAERS Safety Report 10447096 (Version 1)
Quarter: 2014Q3

REPORT INFORMATION
  Report Type: Spontaneous
  Country: DE (occurrence: None)
  Receive Date: 20140909
  Receipt Date: 20140909
  Transmission Date: 20150326
  Serious: Yes (Life-Threatening)
  Sender: FDA-Public Use
  Company Number: DE-H14001-14-00338

PATIENT
  Age: 73 Year
  Sex: Male

DRUGS (3)
  1. CLEXANE (ENOXAPARIN SODIUM) (ENOXAPARIN SODIUM) [Concomitant]
  2. CEFUROXIM [Suspect]
     Active Substance: CEFUROXIME
     Indication: ERYSIPELAS
     Route: 042
     Dates: start: 20140708, end: 20140708
  3. NOVALGIN (NOO-PET-RIN) (CAFFEINE, PARACETAMOL, PROPYPHENAZONE) [Concomitant]

REACTIONS (1)
  - Anaphylactic shock [None]

NARRATIVE: CASE EVENT DATE: 20140708
